FAERS Safety Report 7686392-9 (Version None)
Quarter: 2011Q3

REPORT INFORMATION
  Report Type: 
  Country: None (occurrence: None)
  Receive Date: 20110816
  Receipt Date: 20110803
  Transmission Date: 20111222
  Serious: Yes (Hospitalization, Disabling)
  Sender: FDA-Public Use
  Company Number: US-ELI_LILLY_AND_COMPANY-US201108002319

PATIENT
  Sex: Female

DRUGS (3)
  1. ZYPREXA [Suspect]
     Dosage: 5 MG, QD
     Dates: start: 20031208
  2. ZYPREXA [Suspect]
     Dosage: 40 MG, QD
     Dates: end: 20110701
  3. TRAZODONE HCL [Concomitant]

REACTIONS (10)
  - DISORIENTATION [None]
  - HALLUCINATION [None]
  - LOWER LIMB FRACTURE [None]
  - MEMORY IMPAIRMENT [None]
  - ABNORMAL BEHAVIOUR [None]
  - VISUAL ACUITY REDUCED [None]
  - AMNESIA [None]
  - CONFUSIONAL STATE [None]
  - OVERDOSE [None]
  - ROAD TRAFFIC ACCIDENT [None]
